FAERS Safety Report 12994771 (Version 8)
Quarter: 2018Q2

REPORT INFORMATION
  Report Type: Report from Study
  Country: US (occurrence: US)
  Receive Date: 20161202
  Receipt Date: 20180625
  Transmission Date: 20180711
  Serious: Yes (Hospitalization, Other)
  Sender: FDA-Public Use
  Company Number: US-ACTELION-A-NJ2016-146292

PATIENT
  Age: 53 Year
  Sex: Female

DRUGS (24)
  1. UPTRAVI [Suspect]
     Active Substance: SELEXIPAG
     Indication: PULMONARY ARTERIAL HYPERTENSION
     Dosage: 400 MCG, BID
     Route: 048
     Dates: start: 20160524
  2. OPSUMIT [Suspect]
     Active Substance: MACITENTAN
     Indication: PULMONARY ARTERIAL HYPERTENSION
     Dosage: 10 MG, QD
     Route: 048
     Dates: start: 20150414
  3. AMLODIPINE [Concomitant]
     Active Substance: AMLODIPINE BESYLATE
  4. LYRICA [Concomitant]
     Active Substance: PREGABALIN
  5. PROMETHAZINE [Concomitant]
     Active Substance: PROMETHAZINE\PROMETHAZINE HYDROCHLORIDE
  6. OXYCODONE [Concomitant]
     Active Substance: OXYCODONE
  7. LEVAQUIN [Concomitant]
     Active Substance: LEVOFLOXACIN
  8. XANAX [Concomitant]
     Active Substance: ALPRAZOLAM
  9. PROCHLORPERAZINE. [Concomitant]
     Active Substance: PROCHLORPERAZINE
  10. LIPITOR [Concomitant]
     Active Substance: ATORVASTATIN CALCIUM
  11. PROAIR HFA [Concomitant]
     Active Substance: ALBUTEROL SULFATE
  12. RENVELA [Concomitant]
     Active Substance: SEVELAMER CARBONATE
  13. BACTRIM [Concomitant]
     Active Substance: SULFAMETHOXAZOLE\TRIMETHOPRIM
  14. SENSIPAR [Concomitant]
     Active Substance: CINACALCET HYDROCHLORIDE
  15. CLINDAMYCIN. [Concomitant]
     Active Substance: CLINDAMYCIN
  16. CARVEDILOL. [Concomitant]
     Active Substance: CARVEDILOL
  17. MIDODRINE [Concomitant]
     Active Substance: MIDODRINE
  18. ZOLOFT [Concomitant]
     Active Substance: SERTRALINE HYDROCHLORIDE
  19. NEXIUM [Concomitant]
     Active Substance: ESOMEPRAZOLE MAGNESIUM
  20. ACETAMINOPHEN AND CODEINE [Concomitant]
     Active Substance: ACETAMINOPHEN\CODEINE PHOSPHATE
  21. CYCLOBENZAPRINE. [Concomitant]
     Active Substance: CYCLOBENZAPRINE
  22. AMITRIPTYLINE [Concomitant]
     Active Substance: AMITRIPTYLINE
  23. AMBIEN [Concomitant]
     Active Substance: ZOLPIDEM TARTRATE
  24. LINZESS [Concomitant]
     Active Substance: LINACLOTIDE

REACTIONS (15)
  - Pulmonary arterial pressure increased [Recovered/Resolved]
  - Pneumonia [Unknown]
  - Intestinal obstruction [Unknown]
  - Panic attack [Unknown]
  - Pruritus [Not Recovered/Not Resolved]
  - Mental disorder [Unknown]
  - Ovarian cyst [Unknown]
  - Infectious colitis [Unknown]
  - Anxiety [Unknown]
  - Fluid retention [Not Recovered/Not Resolved]
  - Rash [Not Recovered/Not Resolved]
  - Hypotension [Unknown]
  - Dialysis [Recovered/Resolved]
  - Dizziness [Unknown]
  - Fatigue [Unknown]

NARRATIVE: CASE EVENT DATE: 20161123
